FAERS Safety Report 15720457 (Version 1)
Quarter: 2018Q4

REPORT INFORMATION
  Report Type: Spontaneous
  Country: US (occurrence: US)
  Receive Date: 20181213
  Receipt Date: 20181213
  Transmission Date: 20190205
  Serious: Yes (Other)
  Sender: FDA-Public Use
  Company Number: US-GE HEALTHCARE LIFE SCIENCES-2018CSU003870

PATIENT
  Sex: Female
  Weight: 45 kg

DRUGS (4)
  1. CLOPIDOGREL [Concomitant]
     Active Substance: CLOPIDOGREL BISULFATE
     Dosage: 75 MG, QD
     Route: 048
  2. VISIPAQUE [Suspect]
     Active Substance: IODIXANOL
     Indication: BASILAR ARTERY ANEURYSM
     Dosage: 240 ML, SINGLE
     Route: 013
     Dates: start: 20180816, end: 20180816
  3. LISINOPRIL. [Concomitant]
     Active Substance: LISINOPRIL
     Dosage: 100 MG, QD
     Route: 048
  4. LEVOTHYROXINE. [Concomitant]
     Active Substance: LEVOTHYROXINE
     Dosage: 100 MG, QD
     Route: 048

REACTIONS (2)
  - Seizure [Unknown]
  - Cerebrovascular insufficiency [Unknown]
